FAERS Safety Report 22350061 (Version 1)
Quarter: 2023Q2

REPORT INFORMATION
  Report Type: Spontaneous
  Country: US (occurrence: US)
  Receive Date: 20230522
  Receipt Date: 20230522
  Transmission Date: 20230721
  Serious: No
  Sender: FDA-Public Use
  Company Number: US-SA-SAC20230518000880

PATIENT
  Sex: Female

DRUGS (1)
  1. DUPIXENT [Suspect]
     Active Substance: DUPILUMAB
     Indication: Dermatitis atopic
     Dosage: 300 MG, QOW
     Route: 058
     Dates: start: 20190122

REACTIONS (4)
  - Dyspnoea exertional [Not Recovered/Not Resolved]
  - Bronchitis [Not Recovered/Not Resolved]
  - Computerised tomogram heart abnormal [Not Recovered/Not Resolved]
  - Coronary artery disease [Not Recovered/Not Resolved]
